FAERS Safety Report 4659617-1 (Version None)
Quarter: 2005Q2

REPORT INFORMATION
  Report Type: 
  Country: None (occurrence: None)
  Receive Date: 20050411
  Receipt Date: 20050222
  Transmission Date: 20051028
  Serious: Yes (Other)
  Sender: FDA-Public Use
  Company Number: 396507

PATIENT
  Sex: 0

DRUGS (1)
  1. FUZEON [Suspect]
     Dosage: INTRAVENOUS
     Route: 042

REACTIONS (3)
  - INCORRECT ROUTE OF DRUG ADMINISTRATION [None]
  - MEDICATION ERROR [None]
  - NO ADVERSE EFFECT [None]
